FAERS Safety Report 5971598-7 (Version None)
Quarter: 2008Q4

REPORT INFORMATION
  Report Type: 
  Country: None (occurrence: None)
  Receive Date: 20081126
  Receipt Date: 20081126
  Transmission Date: 20090506
  Serious: Yes (Death)
  Sender: FDA-Public Use
  Company Number: None

PATIENT
  Age: 41 Year
  Sex: Female
  Weight: 81.6475 kg

DRUGS (4)
  1. FENTANYL-100 [Suspect]
     Indication: CONGENITAL CYSTIC KIDNEY DISEASE
     Dosage: ONE Q 72 HRS TRANSDERMAL
     Route: 062
     Dates: start: 20081020, end: 20081030
  2. FENTANYL-100 [Suspect]
     Indication: INTERVERTEBRAL DISC PROTRUSION
     Dosage: ONE Q 72 HRS TRANSDERMAL
     Route: 062
     Dates: start: 20081020, end: 20081030
  3. FENTANYL-100 [Suspect]
     Indication: NEPHROLITHIASIS
     Dosage: ONE Q 72 HRS TRANSDERMAL
     Route: 062
     Dates: start: 20081020, end: 20081030
  4. FENTANYL-100 [Suspect]
     Indication: PAIN
     Dosage: ONE Q 72 HRS TRANSDERMAL
     Route: 062
     Dates: start: 20081020, end: 20081030

REACTIONS (6)
  - FEELING COLD [None]
  - INCORRECT DOSE ADMINISTERED [None]
  - LIVEDO RETICULARIS [None]
  - MEDICATION ERROR [None]
  - MENTAL DISORDER [None]
  - MOBILITY DECREASED [None]
